FAERS Safety Report 25575447 (Version 1)
Quarter: 2025Q3

REPORT INFORMATION
  Report Type: Spontaneous
  Country: EU (occurrence: EU)
  Receive Date: 20250718
  Receipt Date: 20250718
  Transmission Date: 20251020
  Serious: Yes (Death, Life-Threatening, Hospitalization, Other)
  Sender: MANKIND PHARMA
  Company Number: EU-MankindUS-000431

PATIENT
  Age: 66 Year
  Sex: Female

DRUGS (1)
  1. TIMOLOL [Suspect]
     Active Substance: TIMOLOL

REACTIONS (3)
  - Bronchospasm [Unknown]
  - Multiple organ dysfunction syndrome [Fatal]
  - Cardiac arrest [Unknown]
